FAERS Safety Report 17401697 (Version 1)
Quarter: 2020Q1

REPORT INFORMATION
  Report Type: Spontaneous
  Country: US (occurrence: US)
  Receive Date: 20200209
  Receipt Date: 20200209
  Transmission Date: 20200409
  Serious: Yes (Other)
  Sender: FDA-Public Use
  Company Number: None

PATIENT
  Age: 54 Year
  Sex: Male
  Weight: 99 kg

DRUGS (1)
  1. RANITIDINE. [Suspect]
     Active Substance: RANITIDINE
     Indication: DYSPEPSIA
     Dosage: ?          QUANTITY:1 TABLET(S);?
     Route: 048

REACTIONS (6)
  - Gastrointestinal disorder [None]
  - Constipation [None]
  - Diarrhoea [None]
  - Recalled product administered [None]
  - Gastrointestinal pain [None]
  - Defaecation disorder [None]

NARRATIVE: CASE EVENT DATE: 20200208
